FAERS Safety Report 16240605 (Version 1)
Quarter: 2019Q2

REPORT INFORMATION
  Report Type: Spontaneous
  Country: BR (occurrence: BR)
  Receive Date: 20190425
  Receipt Date: 20190425
  Transmission Date: 20190711
  Serious: Yes (Other)
  Sender: FDA-Public Use
  Company Number: BR-MYLANLABS-2019M1029010

PATIENT
  Sex: Male
  Weight: 128 kg

DRUGS (6)
  1. LEPONEX [Suspect]
     Active Substance: CLOZAPINE
     Indication: BIPOLAR DISORDER
     Dosage: UNK
  2. LEPONEX [Suspect]
     Active Substance: CLOZAPINE
     Indication: SCHIZOPHRENIA
     Dosage: UNK UNK, PM
     Route: 048
     Dates: start: 200804
  3. LEPONEX [Suspect]
     Active Substance: CLOZAPINE
     Dosage: UNK, PM
     Route: 048
     Dates: start: 200804
  4. CLOZAPINE. [Suspect]
     Active Substance: CLOZAPINE
     Indication: BIPOLAR DISORDER
     Dosage: 5 DOSAGE FORM, QD
     Route: 048
  5. LEPONEX [Suspect]
     Active Substance: CLOZAPINE
     Dosage: UNK, QD
     Route: 048
     Dates: end: 20190319
  6. CLOZAPINE. [Suspect]
     Active Substance: CLOZAPINE
     Indication: SCHIZOPHRENIA
     Dosage: 6 DOSAGE FORM, QD
     Route: 048

REACTIONS (5)
  - Condition aggravated [Recovering/Resolving]
  - Product use in unapproved indication [Unknown]
  - Product substitution issue [Unknown]
  - Schizophrenia [Recovering/Resolving]
  - Bipolar disorder [Recovering/Resolving]
